FAERS Safety Report 19668588 (Version 1)
Quarter: 2021Q3

REPORT INFORMATION
  Report Type: Spontaneous
  Country: US (occurrence: US)
  Receive Date: 20210806
  Receipt Date: 20210806
  Transmission Date: 20211014
  Serious: Yes (Other)
  Sender: FDA-Public Use
  Company Number: US-GILEAD-2021-0542971

PATIENT
  Sex: Male

DRUGS (1)
  1. TRUVADA [Suspect]
     Active Substance: EMTRICITABINE\TENOFOVIR DISOPROXIL FUMARATE
     Indication: PROPHYLAXIS AGAINST HIV INFECTION
     Dosage: UNK
     Route: 065
     Dates: start: 202012

REACTIONS (14)
  - Sleep disorder [Unknown]
  - Somnambulism [Unknown]
  - Dizziness [Unknown]
  - Diarrhoea [Not Recovered/Not Resolved]
  - Vertigo [Unknown]
  - Fall [Unknown]
  - Neuropathy peripheral [Unknown]
  - Back pain [Unknown]
  - Balance disorder [Unknown]
  - Dyspnoea [Unknown]
  - Arthralgia [Unknown]
  - Weight decreased [Unknown]
  - Pain in extremity [Unknown]
  - Foot fracture [Unknown]
